FAERS Safety Report 20450019 (Version 1)
Quarter: 2022Q1

REPORT INFORMATION
  Report Type: Spontaneous
  Country: US (occurrence: None)
  Receive Date: 20220208
  Receipt Date: 20220208
  Transmission Date: 20220424
  Serious: No
  Sender: FDA-Public Use
  Company Number: None

PATIENT
  Age: 40 Year
  Sex: Female
  Weight: 58.5 kg

DRUGS (1)
  1. AJOVY [Suspect]
     Active Substance: FREMANEZUMAB-VFRM
     Indication: Migraine
     Dosage: OTHER QUANTITY : 1 INJECTION(S);?OTHER FREQUENCY : 1X MONTH;?
     Route: 058
     Dates: start: 20210801

REACTIONS (9)
  - Injection site reaction [None]
  - Injection site pruritus [None]
  - Injection site swelling [None]
  - Urticaria [None]
  - Injection site pain [None]
  - Injection site bruising [None]
  - Injection site warmth [None]
  - Injection site erythema [None]
  - Injection site mass [None]

NARRATIVE: CASE EVENT DATE: 20220207
